FAERS Safety Report 9558175 (Version 7)
Quarter: 2014Q3

REPORT INFORMATION
  Report Type: Report from Study
  Country: CO (occurrence: CO)
  Receive Date: 20130926
  Receipt Date: 20140919
  Transmission Date: 20150326
  Serious: Yes (Hospitalization)
  Sender: FDA-Public Use
  Company Number: CO-MERCK-1309COL010367

PATIENT
  Age: 31 Year
  Sex: Male
  Weight: 62 kg

DRUGS (13)
  1. BLINDED VARICELLA-ZOSTER VIRUS VACCINE INACTIVATED (OKA/MERCK) [Suspect]
     Active Substance: VARICELLA-ZOSTER VIRUS STRAIN OKA/MERCK LIVE ANTIGEN
     Indication: PROPHYLAXIS
     Route: 058
     Dates: start: 20130724, end: 20130724
  2. OMEPRAZOLE. [Concomitant]
     Active Substance: OMEPRAZOLE
     Indication: HAEMORRHAGE PROPHYLAXIS
     Dosage: 20 MG, QD
     Route: 048
     Dates: start: 20130827, end: 20130919
  3. PEGFILGRASTIM [Concomitant]
     Active Substance: PEGFILGRASTIM
     Indication: ACUTE MYELOID LEUKAEMIA
     Dosage: TOTAL DAILY DOSE: 6 MG, ONCE, FORMULATION AMPOULE
     Route: 058
     Dates: start: 20130902, end: 20130902
  4. ONDANSETRON [Concomitant]
     Active Substance: ONDANSETRON
     Indication: ANTIEMETIC SUPPORTIVE CARE
     Dosage: 8 MG, TID, FORMULATION AMPOULE
     Route: 042
     Dates: start: 20130826, end: 20130826
  5. BLINDED VARICELLA-ZOSTER VIRUS VACCINE INACTIVATED (OKA/MERCK) [Suspect]
     Active Substance: VARICELLA-ZOSTER VIRUS STRAIN OKA/MERCK LIVE ANTIGEN
     Route: 058
     Dates: start: 20130923, end: 20130923
  6. BLINDED VARICELLA-ZOSTER VIRUS VACCINE INACTIVATED (OKA/MERCK) [Suspect]
     Active Substance: VARICELLA-ZOSTER VIRUS STRAIN OKA/MERCK LIVE ANTIGEN
     Route: 058
     Dates: start: 20130815, end: 20130815
  7. DEXAMETHASONE. [Concomitant]
     Active Substance: DEXAMETHASONE
     Indication: PROPHYLACTIC CHEMOTHERAPY
     Dosage: 1 GTT, TID
     Route: 047
     Dates: start: 20130828, end: 20130904
  8. CYTARABINE. [Concomitant]
     Active Substance: CYTARABINE
     Indication: ACUTE MYELOID LEUKAEMIA
     Dosage: TOTAL DAILY DOSE: 8000 MG, QOD, FORMULATION: AMPOLE
     Route: 042
     Dates: start: 20130826, end: 20130830
  9. HIDAC HIGH DOSE CYTARABINE [Suspect]
     Active Substance: CYTARABINE
     Indication: ACUTE MYELOID LEUKAEMIA
     Dosage: FORMULATION AMPOULE, QD
     Route: 042
     Dates: start: 20130826, end: 20131011
  10. DEXAMETHASONE. [Concomitant]
     Active Substance: DEXAMETHASONE
     Indication: ACUTE MYELOID LEUKAEMIA
     Dosage: 16 MG, QD,  FORMULATION AMPOLE
     Route: 042
     Dates: start: 20130828, end: 20130901
  11. BLINDED VARICELLA-ZOSTER VIRUS VACCINE INACTIVATED (OKA/MERCK) [Suspect]
     Active Substance: VARICELLA-ZOSTER VIRUS STRAIN OKA/MERCK LIVE ANTIGEN
     Route: 058
     Dates: start: 20131018, end: 20131018
  12. NADROPARIN CALCIUM [Concomitant]
     Active Substance: NADROPARIN CALCIUM
     Indication: THROMBOSIS PROPHYLAXIS
     Dosage: 40 MG, QD,  FORMULATION AMPOULE
     Route: 058
     Dates: start: 20130826, end: 20130906
  13. CYTARABINE (+) IDARUBICIN HYDROCHLORIDE [Concomitant]
     Indication: ACUTE MYELOID LEUKAEMIA
     Dosage: 170 MG, QD, FORMULATION AMPOLE
     Route: 042
     Dates: start: 20130523

REACTIONS (4)
  - Febrile neutropenia [Recovered/Resolved]
  - Anaemia [None]
  - Thrombocytopenia [None]
  - Atelectasis [None]

NARRATIVE: CASE EVENT DATE: 20130907
